FAERS Safety Report 6930993-X (Version None)
Quarter: 2010Q3

REPORT INFORMATION
  Report Type: 
  Country: None (occurrence: None)
  Receive Date: 20100817
  Receipt Date: 20100817
  Transmission Date: 20110219
  Serious: Yes (Hospitalization, Disabling, Other)
  Sender: FDA-Public Use
  Company Number: None

PATIENT
  Age: 25 Year
  Sex: Female
  Weight: 122.7 kg

DRUGS (2)
  1. BONTRIL [Suspect]
     Indication: OBESITY
     Dosage: 105MG SR Q.D. P.O.
     Route: 048
     Dates: start: 20030101, end: 20030801
  2. CYMBALTA [Suspect]
     Indication: DEPRESSION
     Dosage: 90 MG Q.D. P.O.
     Route: 048
     Dates: start: 20090201, end: 20090501

REACTIONS (8)
  - ANGER [None]
  - ARRHYTHMIA [None]
  - CARDIAC DISORDER [None]
  - MENTAL DISORDER [None]
  - OBESITY [None]
  - PALPITATIONS [None]
  - PSYCHOTIC DISORDER [None]
  - TACHYCARDIA [None]
